FAERS Safety Report 9628572 (Version 2)
Quarter: 2013Q4

REPORT INFORMATION
  Report Type: Spontaneous
  Country: US (occurrence: US)
  Receive Date: 20131017
  Receipt Date: 20131114
  Transmission Date: 20140711
  Serious: No
  Sender: FDA-Public Use
  Company Number: US-009507513-1309USA009337

PATIENT
  Age: 60 Year
  Sex: Male
  Weight: 84.35 kg

DRUGS (2)
  1. PEGINTRON [Suspect]
     Indication: HEPATITIS C
     Dosage: 150 MICROGRAM, WEEKLY
     Route: 058
     Dates: start: 201308
  2. LISINOPRIL [Concomitant]

REACTIONS (2)
  - Fatigue [Unknown]
  - Irritability [Recovered/Resolved]
